FAERS Safety Report 25984968 (Version 3)
Quarter: 2025Q4

REPORT INFORMATION
  Report Type: Report from Study
  Country: US (occurrence: US)
  Receive Date: 20251031
  Receipt Date: 20251126
  Transmission Date: 20260118
  Serious: Yes (Death, Hospitalization, Other)
  Sender: TAIHO ONCOLOGY INC
  Company Number: US-TAIHOP-2025-006924

PATIENT
  Age: 83 Year
  Sex: Female

DRUGS (12)
  1. INQOVI [Suspect]
     Active Substance: CEDAZURIDINE\DECITABINE
     Indication: Endometrial neoplasm
     Dosage: 135 MG (DECITABINE 35 MG AND CEDAZURIDINE 100 MG); ON DAYS 1-5 OF 28 DAYS;?CYCLE UNKNOWN
     Route: 048
     Dates: start: 20250510
  2. INQOVI [Suspect]
     Active Substance: CEDAZURIDINE\DECITABINE
     Dosage: 135 MG (DECITABINE 35 MG AND CEDAZURIDINE 100 MG); ON DAYS 1-3 OF 28 DAYS;?CYCLE UNKNOWN
     Route: 048
  3. CRESTOR [Concomitant]
     Active Substance: ROSUVASTATIN CALCIUM
     Indication: Product used for unknown indication
  4. DEXAMETHASONE [Concomitant]
     Active Substance: DEXAMETHASONE
     Indication: Product used for unknown indication
  5. ELIQUIS [Concomitant]
     Active Substance: APIXABAN
     Indication: Product used for unknown indication
  6. LETROZOLE [Concomitant]
     Active Substance: LETROZOLE
     Indication: Product used for unknown indication
  7. LISINOPRIL [Concomitant]
     Active Substance: LISINOPRIL
     Indication: Product used for unknown indication
  8. METFORMIN [Concomitant]
     Active Substance: METFORMIN HYDROCHLORIDE
     Indication: Product used for unknown indication
  9. OMEPRAZOLE [Concomitant]
     Active Substance: OMEPRAZOLE
     Indication: Product used for unknown indication
  10. VITAMIN B12 [Concomitant]
     Active Substance: CYANOCOBALAMIN
     Indication: Product used for unknown indication
  11. SODIUM BICAR [Concomitant]
     Indication: Product used for unknown indication
  12. MULTIVITAMIN ADULTS [Concomitant]
     Indication: Product used for unknown indication

REACTIONS (15)
  - Death [Fatal]
  - Gait disturbance [Unknown]
  - Fall [Unknown]
  - Pain in extremity [Unknown]
  - Cytopenia [Unknown]
  - Cholelithiasis [Unknown]
  - Anaemia [Unknown]
  - Dyspnoea [Unknown]
  - Urinary tract infection [Unknown]
  - Malaise [Unknown]
  - Fatigue [Unknown]
  - Acute kidney injury [Unknown]
  - Thrombocytopenia [Unknown]
  - Product use in unapproved indication [Unknown]
  - Inappropriate schedule of product administration [Unknown]
